FAERS Safety Report 11171160 (Version 1)
Quarter: 2015Q2

REPORT INFORMATION
  Report Type: Spontaneous
  Country: US (occurrence: None)
  Receive Date: 20150515
  Receipt Date: 20150515
  Transmission Date: 20150821
  Serious: Yes (Hospitalization, Other)
  Sender: FDA-Public Use
  Company Number: 2014012323

PATIENT
  Age: 27 Year
  Sex: Female
  Weight: 79 kg

DRUGS (2)
  1. FLAGYL (METRONIDAZOLE) [Concomitant]
  2. CIMZIA [Suspect]
     Active Substance: CERTOLIZUMAB PEGOL
     Indication: CROHN^S DISEASE
     Dosage: EV 4 WEEKS
     Route: 058
     Dates: start: 201110, end: 201409

REACTIONS (4)
  - Crohn^s disease [None]
  - Drug ineffective [None]
  - Gallbladder disorder [None]
  - Fistula [None]

NARRATIVE: CASE EVENT DATE: 20140912
